FAERS Safety Report 23789709 (Version 1)
Quarter: 2024Q2

REPORT INFORMATION
  Report Type: Report from Study
  Country: PR (occurrence: PR)
  Receive Date: 20240426
  Receipt Date: 20240426
  Transmission Date: 20240716
  Serious: Yes (Death)
  Sender: FDA-Public Use
  Company Number: PR-PFIZER INC-202300247278

PATIENT
  Age: 63 Year
  Sex: Female

DRUGS (10)
  1. IBRANCE [Suspect]
     Active Substance: PALBOCICLIB
     Dosage: 100 MG 1 TABLET DAILY
     Route: 048
     Dates: start: 20230701
  2. IBRANCE [Suspect]
     Active Substance: PALBOCICLIB
     Dosage: 100 MG, CYCLIC (DAILY FOR 21 DAYS)
     Route: 048
     Dates: start: 20230701
  3. IBRANCE [Suspect]
     Active Substance: PALBOCICLIB
     Dosage: 100 MG, CYCLIC (100 MG, 2 TABS DAILY, 21 DAYS ON, 7 DAYS OFF)
     Route: 048
     Dates: start: 20230701
  4. IBRANCE [Suspect]
     Active Substance: PALBOCICLIB
     Dosage: 100 MG 1 TAB 21 DAYS AND 7 DAYS OFF
     Route: 048
  5. IBRANCE [Suspect]
     Active Substance: PALBOCICLIB
     Dosage: 100 MG, CYCLIC (100MG TAB; PO, 1 TAB 21 DAYS AND 7 DAYS OFF))
     Route: 048
     Dates: start: 20230701
  6. IBRANCE [Suspect]
     Active Substance: PALBOCICLIB
     Dosage: FOR 21 DAYS
     Dates: start: 20220701
  7. JANUVIA [Concomitant]
     Active Substance: SITAGLIPTIN PHOSPHATE
     Dosage: UNK
  8. ROSUVASTATIN [Concomitant]
     Active Substance: ROSUVASTATIN
     Dosage: UNK
  9. VITAMIN D3 [Concomitant]
     Active Substance: CHOLECALCIFEROL
     Dosage: UNK
  10. METFORMIN [Concomitant]
     Active Substance: METFORMIN HYDROCHLORIDE
     Indication: Diabetes mellitus
     Dosage: UNK

REACTIONS (9)
  - Death [Fatal]
  - Fatigue [Unknown]
  - Neoplasm progression [Unknown]
  - Rash [Not Recovered/Not Resolved]
  - Vitamin D decreased [Unknown]
  - Constipation [Unknown]
  - Back pain [Not Recovered/Not Resolved]
  - Urticaria [Unknown]
  - Asthma [Recovering/Resolving]

NARRATIVE: CASE EVENT DATE: 20231001
